FAERS Safety Report 9188353 (Version 1)
Quarter: 2013Q1

REPORT INFORMATION
  Report Type: Spontaneous
  Country: US (occurrence: US)
  Receive Date: 20130325
  Receipt Date: 20130325
  Transmission Date: 20140127
  Serious: No
  Sender: FDA-Public Use
  Company Number: US-BAYER-2013-036568

PATIENT
  Age: 91 Year
  Sex: Male

DRUGS (5)
  1. ALEVE CAPLET/TABLET,MIDOL EXTENDED RELIEF CAPLET [Suspect]
     Indication: ARTHRITIS
     Dosage: 3 DF, A DAY
     Route: 048
     Dates: start: 201302
  2. ALEVE CAPLET/TABLET,MIDOL EXTENDED RELIEF CAPLET [Suspect]
     Indication: ARTHRITIS
     Dosage: 4 DF, DAILY
     Route: 048
  3. OCUVITE [Concomitant]
  4. POTASSIUM [Concomitant]
  5. CARVEDILOL [Concomitant]

REACTIONS (3)
  - Overdose [None]
  - Incorrect drug administration duration [None]
  - Drug ineffective [None]
